FAERS Safety Report 8905414 (Version 1)
Quarter: 2012Q4

REPORT INFORMATION
  Report Type: 
  Country: US (occurrence: US)
  Receive Date: 20121112
  Receipt Date: 20121112
  Transmission Date: 20130627
  Serious: Yes (Hospitalization)
  Sender: FDA-Public Use
  Company Number: US-BAYER-2012-116896

PATIENT
  Age: 28 Year
  Sex: Female
  Weight: 147.39 kg

DRUGS (2)
  1. YASMIN [Suspect]
  2. TINDAMAX [Concomitant]
     Dosage: 500 mg, take 2 T (tablet) now and repeat 2 T in one hour
     Route: 048
     Dates: start: 20050702

REACTIONS (1)
  - Deep vein thrombosis [None]
